FAERS Safety Report 13995908 (Version 1)
Quarter: 2017Q3

REPORT INFORMATION
  Report Type: Report from Study
  Country: US (occurrence: US)
  Receive Date: 20170921
  Receipt Date: 20170921
  Transmission Date: 20171128
  Serious: Yes (Other)
  Sender: FDA-Public Use
  Company Number: US-UCBSA-2017023068

PATIENT
  Age: 65 Year
  Sex: Male

DRUGS (2)
  1. MULTAQ [Concomitant]
     Active Substance: DRONEDARONE
     Indication: ATRIAL FIBRILLATION
  2. LEVETIRACETAM. [Suspect]
     Active Substance: LEVETIRACETAM
     Indication: FOCAL DYSCOGNITIVE SEIZURES
     Dosage: 500 MG, 2X/DAY (BID)

REACTIONS (5)
  - Pruritus [Unknown]
  - Atrial fibrillation [Unknown]
  - Amnesia [Unknown]
  - Focal dyscognitive seizures [Unknown]
  - Unevaluable event [Recovered/Resolved]
